FAERS Safety Report 13329054 (Version 1)
Quarter: 2017Q1

REPORT INFORMATION
  Report Type: Spontaneous
  Country: US (occurrence: US)
  Receive Date: 20170313
  Receipt Date: 20170313
  Transmission Date: 20170428
  Serious: Yes (Other)
  Sender: FDA-Public Use
  Company Number: None

PATIENT
  Age: 38 Year
  Sex: Female

DRUGS (2)
  1. OMEPRAZOLE. [Suspect]
     Active Substance: OMEPRAZOLE
     Indication: GASTROOESOPHAGEAL REFLUX DISEASE
     Dosage: ?          QUANTITY:30 CAPSULE(S);?
     Route: 048
     Dates: start: 20140825, end: 20170310
  2. OMEPRAZOLE. [Suspect]
     Active Substance: OMEPRAZOLE
     Indication: DYSPEPSIA
     Dosage: ?          QUANTITY:30 CAPSULE(S);?
     Route: 048
     Dates: start: 20140825, end: 20170310

REACTIONS (17)
  - Vitamin B complex deficiency [None]
  - Vitamin D deficiency [None]
  - Depression [None]
  - Angular cheilitis [None]
  - Hypoaesthesia [None]
  - Irritability [None]
  - Musculoskeletal stiffness [None]
  - Fatigue [None]
  - Somnolence [None]
  - Balance disorder [None]
  - Constipation [None]
  - Gastric pH increased [None]
  - Malabsorption [None]
  - Amnesia [None]
  - Coordination abnormal [None]
  - Impaired healing [None]
  - Paraesthesia [None]

NARRATIVE: CASE EVENT DATE: 20170201
